FAERS Safety Report 19278397 (Version 2)
Quarter: 2021Q2

REPORT INFORMATION
  Report Type: Report from Study
  Country: None (occurrence: CA)
  Receive Date: 20210520
  Receipt Date: 20210615
  Transmission Date: 20210717
  Serious: Yes (Other)
  Sender: FDA-Public Use
  Company Number: CA-ABBVIE-21K-028-3883481-00

PATIENT
  Age: 41 Year
  Sex: Male

DRUGS (2)
  1. HUMIRA [Suspect]
     Active Substance: ADALIMUMAB
     Route: 058
     Dates: start: 20210427, end: 2021
  2. HUMIRA [Suspect]
     Active Substance: ADALIMUMAB
     Indication: ANKYLOSING SPONDYLITIS
     Route: 058
     Dates: start: 20201229, end: 20210407

REACTIONS (13)
  - Postoperative wound complication [Not Recovered/Not Resolved]
  - Osteomyelitis [Not Recovered/Not Resolved]
  - Inflammation of wound [Not Recovered/Not Resolved]
  - Wound secretion [Not Recovered/Not Resolved]
  - Postoperative adhesion [Not Recovered/Not Resolved]
  - Impaired healing [Not Recovered/Not Resolved]
  - Back disorder [Not Recovered/Not Resolved]
  - Wound haemorrhage [Recovered/Resolved]
  - Ankylosing spondylitis [Not Recovered/Not Resolved]
  - Complication associated with device [Unknown]
  - Wound complication [Not Recovered/Not Resolved]
  - Wound infection [Not Recovered/Not Resolved]
  - Post procedural inflammation [Not Recovered/Not Resolved]

NARRATIVE: CASE EVENT DATE: 2021
